FAERS Safety Report 20468470 (Version 1)
Quarter: 2022Q1

REPORT INFORMATION
  Report Type: Spontaneous
  Country: US (occurrence: None)
  Receive Date: 20220211
  Receipt Date: 20220211
  Transmission Date: 20220423
  Serious: Yes (Other)
  Sender: FDA-Public Use
  Company Number: None

PATIENT
  Age: 39 Year
  Sex: Female
  Weight: 54.9 kg

DRUGS (6)
  1. AMPHETAMINE SULFATE [Suspect]
     Active Substance: AMPHETAMINE SULFATE
     Indication: Attention deficit hyperactivity disorder
     Dosage: 90 TABLETS  3 TIMES A DAY ORAL?
     Route: 048
     Dates: start: 20081024, end: 20220211
  2. BUPRENORPHINE [Suspect]
     Active Substance: BUPRENORPHINE
     Indication: Drug dependence
     Dosage: OTHER QUANTITY : 1.5 TABLET(S);?OTHER FREQUENCY : ONE AND A HALF A D;?
     Route: 048
     Dates: start: 20131021, end: 20200918
  3. ADDERALL [Concomitant]
  4. BUPRENOPHINE [Concomitant]
  5. MULTIVITAMIN [Concomitant]
  6. TYLENOL [Suspect]
     Active Substance: ACETAMINOPHEN

REACTIONS (2)
  - Heart rate decreased [None]
  - Suspected product quality issue [None]

NARRATIVE: CASE EVENT DATE: 20220126
